FAERS Safety Report 5563763-8 (Version None)
Quarter: 2007Q4

REPORT INFORMATION
  Report Type: 
  Country: None (occurrence: None)
  Receive Date: 20071217
  Receipt Date: 20070817
  Transmission Date: 20080405
  Serious: No
  Sender: FDA-Public Use
  Company Number: US-ASTRAZENECA-2007UW19839

PATIENT
  Age: 81 Year
  Sex: Female
  Weight: 65.8 kg

DRUGS (6)
  1. CRESTOR [Suspect]
     Indication: BLOOD CHOLESTEROL INCREASED
     Route: 048
  2. TOPROL-XL [Concomitant]
  3. POTASSIUM CHLORIDE [Concomitant]
  4. SYNTHROID [Concomitant]
  5. ZOLOFT [Concomitant]
  6. LASIX [Concomitant]

REACTIONS (2)
  - MASS [None]
  - MYALGIA [None]
